FAERS Safety Report 7156765-1 (Version None)
Quarter: 2010Q4

REPORT INFORMATION
  Report Type: 
  Country: None (occurrence: None)
  Receive Date: 20101214
  Receipt Date: 20101123
  Transmission Date: 20110411
  Serious: No
  Sender: FDA-Public Use
  Company Number: US-PFIZER INC-2010160156

PATIENT
  Age: 46 Year
  Sex: Female
  Weight: 54.422 kg

DRUGS (4)
  1. ADVIL [Suspect]
     Indication: MIGRAINE
     Dosage: 2 LIQUI GELS Q 4-6 HRS
     Route: 048
  2. ADVIL [Suspect]
     Indication: NECK PAIN
  3. ADVIL [Suspect]
     Indication: MUSCULOSKELETAL PAIN
  4. ADVIL [Suspect]
     Indication: PAIN

REACTIONS (3)
  - ABDOMINAL DISCOMFORT [None]
  - ABDOMINAL PAIN [None]
  - NAUSEA [None]
